FAERS Safety Report 4425522-9 (Version None)
Quarter: 2004Q3

REPORT INFORMATION
  Report Type: 
  Country: None (occurrence: None)
  Receive Date: 20040719
  Receipt Date: 20030616
  Transmission Date: 20050211
  Serious: Yes (Hospitalization)
  Sender: FDA-Public Use
  Company Number: 171969

PATIENT
  Age: 47 Year
  Sex: Female
  Weight: 68.0396 kg

DRUGS (4)
  1. AVONEX [Suspect]
     Indication: MULTIPLE SCLEROSIS
     Dosage: 30 MCG QW IM
     Route: 030
     Dates: start: 20020601
  2. SYNTHROID [Concomitant]
  3. BEXTRA [Concomitant]
  4. PROZAC [Concomitant]

REACTIONS (10)
  - ASTHENIA [None]
  - CONTUSION [None]
  - CRYING [None]
  - FALL [None]
  - INFLUENZA LIKE ILLNESS [None]
  - LIPOMA [None]
  - MULTIPLE SCLEROSIS RELAPSE [None]
  - MUSCLE SPASMS [None]
  - NODULE [None]
  - WEIGHT INCREASED [None]
